FAERS Safety Report 6874652-0 (Version None)
Quarter: 2010Q3

REPORT INFORMATION
  Report Type: 
  Country: None (occurrence: None)
  Receive Date: 20100722
  Receipt Date: 20100707
  Transmission Date: 20110219
  Serious: Yes (Other)
  Sender: FDA-Public Use
  Company Number: AUR-APL-2010-01801

PATIENT
  Age: 47 Year
  Sex: Female
  Weight: 141.5223 kg

DRUGS (15)
  1. MIRTAZAPINE [Suspect]
  2. SIMVASTATIN [Suspect]
     Indication: BLOOD CHOLESTEROL INCREASED
  3. NEURONTIN [Suspect]
     Indication: NEUROPATHY PERIPHERAL
     Dosage: 300MG, DAILY
  4. XANAX [Suspect]
     Indication: ANXIETY
     Dosage: 1/2 TAB, DAILY, ORAL
     Route: 048
  5. XANAX [Suspect]
     Indication: INSOMNIA
     Dosage: 1/2 TAB, DAILY, ORAL
     Route: 048
  6. PRISTIQ [Suspect]
     Dosage: 50MG, DAILY, ORAL
     Route: 048
     Dates: start: 20100704
  7. LEVOXYL [Suspect]
     Indication: THYROID DISORDER
     Dosage: 100MG
  8. NEXIUM [Suspect]
     Indication: GASTROOESOPHAGEAL REFLUX DISEASE
     Dosage: PRN
  9. CYMBALTA [Suspect]
     Indication: PAIN
  10. ADVAIR DISKUS 100/50 [Suspect]
     Indication: ASTHMA
  11. FLOVENT [Suspect]
     Indication: ASTHMA
  12. ATROVENT [Suspect]
     Indication: ASTHMA
  13. IBUPROFEN (ADVIL) [Suspect]
     Indication: PAIN
  14. ACETYLSALICYLIC ACID SRT [Suspect]
     Indication: PAIN
  15. MIRALAX [Concomitant]

REACTIONS (5)
  - BLOOD GLUCOSE DECREASED [None]
  - DYSPEPSIA [None]
  - FEELING ABNORMAL [None]
  - GASTROINTESTINAL ULCER [None]
  - RASH [None]
